FAERS Safety Report 16531295 (Version 1)
Quarter: 2019Q3

REPORT INFORMATION
  Report Type: Spontaneous
  Country: US (occurrence: US)
  Receive Date: 20190523
  Receipt Date: 20190523
  Transmission Date: 20191004
  Serious: Yes (Hospitalization)
  Sender: FDA-Public Use
  Company Number: None

PATIENT
  Sex: Female

DRUGS (1)
  1. VIGABATRIN 500 MG PAR PHARMACEUTICAL [Suspect]
     Active Substance: VIGABATRIN
     Indication: EPILEPSY
     Dosage: ?          OTHER DOSE:500MGAM/200MG/PM/5;OTHER FREQUENCY:AM.PM. EVENING;OTHER ROUTE:PO/G-TUBE?
     Dates: start: 20190410

REACTIONS (1)
  - Hospitalisation [None]
